FAERS Safety Report 25231222 (Version 1)
Quarter: 2025Q2

REPORT INFORMATION
  Report Type: Spontaneous
  Country: JP (occurrence: JP)
  Receive Date: 20250423
  Receipt Date: 20250423
  Transmission Date: 20250717
  Serious: Yes (Death)
  Sender: MERCK SHARP & DOHME LLC
  Company Number: JP-009507513-2273504

PATIENT
  Age: 75 Year
  Sex: Female

DRUGS (1)
  1. CILASTATIN SODIUM\IMIPENEM [Suspect]
     Active Substance: CILASTATIN SODIUM\IMIPENEM
     Route: 041
     Dates: start: 20250329, end: 20250331

REACTIONS (4)
  - Death [Fatal]
  - Liquid product physical issue [Unknown]
  - Poor quality product administered [Unknown]
  - Product deposit [Unknown]

NARRATIVE: CASE EVENT DATE: 20250329
